FAERS Safety Report 8920344 (Version 2)
Quarter: 2013Q4

REPORT INFORMATION
  Report Type: Spontaneous
  Country: GB (occurrence: GB)
  Receive Date: 20121122
  Receipt Date: 20131008
  Transmission Date: 20140711
  Serious: Yes (Other)
  Sender: FDA-Public Use
  Company Number: GB-ROCHE-1156637

PATIENT
  Age: 44 Year
  Sex: Female

DRUGS (2)
  1. NAPROXEN [Suspect]
     Indication: ARTHRALGIA
     Route: 048
     Dates: end: 20121102
  2. CITALOPRAM [Concomitant]
     Route: 048

REACTIONS (2)
  - Condition aggravated [Recovering/Resolving]
  - Epistaxis [Recovering/Resolving]
